FAERS Safety Report 10034547 (Version 1)
Quarter: 2014Q1

REPORT INFORMATION
  Report Type: Spontaneous
  Country: US (occurrence: US)
  Receive Date: 20140325
  Receipt Date: 20140325
  Transmission Date: 20141002
  Serious: Yes (Death)
  Sender: FDA-Public Use
  Company Number: US-ROCHE-1371162

PATIENT
  Age: 59 Year
  Sex: Female

DRUGS (10)
  1. DIAZEPAM [Suspect]
     Indication: PRODUCT USED FOR UNKNOWN INDICATION
     Route: 048
  2. DIAZEPAM [Suspect]
     Route: 048
  3. DULOXETINE [Suspect]
     Indication: PRODUCT USED FOR UNKNOWN INDICATION
     Route: 048
  4. DULOXETINE [Suspect]
     Route: 048
  5. QUETIAPINE [Suspect]
     Indication: PRODUCT USED FOR UNKNOWN INDICATION
     Route: 048
  6. QUETIAPINE [Suspect]
     Route: 048
  7. OXYBUTYNIN [Suspect]
     Indication: PRODUCT USED FOR UNKNOWN INDICATION
     Route: 048
  8. OXYBUTYNIN [Suspect]
     Route: 048
  9. ZOLPIDEM [Suspect]
     Indication: PRODUCT USED FOR UNKNOWN INDICATION
     Route: 048
  10. ZOLPIDEM [Suspect]
     Route: 048

REACTIONS (3)
  - Toxicity to various agents [Fatal]
  - Cardiac arrest [Fatal]
  - Respiratory arrest [Fatal]
